FAERS Safety Report 4408352-3 (Version None)
Quarter: 2004Q3

REPORT INFORMATION
  Report Type: 
  Country: None (occurrence: None)
  Receive Date: 20040722
  Receipt Date: 20040709
  Transmission Date: 20050211
  Serious: Yes (Death)
  Sender: FDA-Public Use
  Company Number: US-JNJFOC-20040404825

PATIENT
  Age: 43 Year
  Sex: Male
  Weight: 94.3482 kg

DRUGS (6)
  1. DURAGESIC [Suspect]
     Indication: PAIN
     Dosage: 100 UG/HR, 1 IN 72 HOUR, TRANSDERMAL
     Route: 062
     Dates: start: 20030901
  2. AMBIEN [Concomitant]
  3. DIAZEPAM [Concomitant]
  4. LORTAB [Concomitant]
  5. PREVACID [Concomitant]
  6. ZYPREXA [Concomitant]

REACTIONS (1)
  - DEATH [None]
